FAERS Safety Report 7754528-7 (Version None)
Quarter: 2011Q3

REPORT INFORMATION
  Report Type: 
  Country: None (occurrence: None)
  Receive Date: 20110915
  Receipt Date: 20110913
  Transmission Date: 20111222
  Serious: No
  Sender: FDA-Public Use
  Company Number: US-BAYER-2011-086003

PATIENT
  Sex: Male
  Weight: 204 kg

DRUGS (1)
  1. ULTRAVIST 150 [Suspect]
     Indication: COMPUTERISED TOMOGRAM
     Dosage: SIZE OF VIAL/BOTTLE 500, RATE 2U
     Route: 042
     Dates: start: 20110909

REACTIONS (2)
  - URTICARIA [None]
  - PRURITUS [None]
